FAERS Safety Report 18544480 (Version 2)
Quarter: 2021Q1

REPORT INFORMATION
  Report Type: Report from Study
  Country: None (occurrence: US)
  Receive Date: 20201125
  Receipt Date: 20210128
  Transmission Date: 20210419
  Serious: Yes (Death)
  Sender: FDA-Public Use
  Company Number: US-ABBVIE-20K-163-3665874-00

PATIENT
  Age: 89 Year
  Sex: Male
  Weight: 56.75 kg

DRUGS (2)
  1. INSULIN [Concomitant]
     Active Substance: INSULIN NOS
     Indication: DIABETES MELLITUS
  2. CREON [Suspect]
     Active Substance: PANCRELIPASE AMYLASE\PANCRELIPASE LIPASE\PANCRELIPASE PROTEASE
     Indication: PANCREATIC FAILURE
     Dosage: 2 PER MEALS, 1 PER SNACKS
     Route: 048
     Dates: start: 2019

REACTIONS (3)
  - Body height decreased [Unknown]
  - Renal failure [Fatal]
  - Weight decreased [Unknown]

NARRATIVE: CASE EVENT DATE: 20201101
